FAERS Safety Report 20487170 (Version 1)
Quarter: 2022Q1

REPORT INFORMATION
  Report Type: Spontaneous
  Country: DE (occurrence: DE)
  Receive Date: 20220217
  Receipt Date: 20220217
  Transmission Date: 20220423
  Serious: Yes (Death)
  Sender: FDA-Public Use
  Company Number: None

PATIENT
  Age: 71 Year
  Sex: Male

DRUGS (1)
  1. PEMBROLIZUMAB [Suspect]
     Active Substance: PEMBROLIZUMAB
     Indication: Bronchial carcinoma
     Dosage: DAILY DOSE: 600 MG MILLGRAM(S) EVERY DAYS 3 SEPARATED DOSES, 3 CYCLES OF 1X 200 MG
     Route: 042
     Dates: start: 20210323, end: 20210505

REACTIONS (1)
  - Pneumonitis [Fatal]
